FAERS Safety Report 4429276-1 (Version None)
Quarter: 2004Q3

REPORT INFORMATION
  Report Type: 
  Country: None (occurrence: None)
  Receive Date: 20040819
  Receipt Date: 20040809
  Transmission Date: 20050211
  Serious: Yes (Hospitalization)
  Sender: FDA-Public Use
  Company Number: PHNU2004DE02806

PATIENT
  Age: 84 Year
  Sex: Male

DRUGS (1)
  1. ZOMETA [Suspect]
     Indication: PROSTATE CANCER METASTATIC
     Dosage: 4 MG, QMO
     Dates: start: 20030825, end: 20040608

REACTIONS (5)
  - BLOOD CREATININE INCREASED [None]
  - FEBRILE INFECTION [None]
  - HYDRONEPHROSIS [None]
  - POSTRENAL FAILURE [None]
  - PROSTATECTOMY [None]
